FAERS Safety Report 17967222 (Version 1)
Quarter: 2020Q3

REPORT INFORMATION
  Report Type: Spontaneous
  Country: US (occurrence: US)
  Receive Date: 20200701
  Receipt Date: 20200701
  Transmission Date: 20201103
  Serious: Yes (Hospitalization)
  Sender: FDA-Public Use
  Company Number: None

PATIENT
  Age: 18 Month
  Sex: Female
  Weight: 10.5 kg

DRUGS (2)
  1. CYCLOPHOSPHAMIDE. [Suspect]
     Active Substance: CYCLOPHOSPHAMIDE
     Dates: end: 20200615
  2. TOPOTECAN [Suspect]
     Active Substance: TOPOTECAN HYDROCHLORIDE
     Dates: end: 20200614

REACTIONS (7)
  - Escherichia infection [None]
  - Abdominal compartment syndrome [None]
  - Neuroblastoma [None]
  - Mass [None]
  - Respiratory failure [None]
  - Intra-abdominal fluid collection [None]
  - Haemoperitoneum [None]

NARRATIVE: CASE EVENT DATE: 20200620
